FAERS Safety Report 17895042 (Version 2)
Quarter: 2020Q3

REPORT INFORMATION
  Report Type: Spontaneous
  Country: US (occurrence: US)
  Receive Date: 20200615
  Receipt Date: 20200805
  Transmission Date: 20201103
  Serious: Yes (Other)
  Sender: FDA-Public Use
  Company Number: NVSC2020US157674

PATIENT
  Age: 58 Year
  Sex: Male
  Weight: 101.58 kg

DRUGS (1)
  1. ENTRESTO [Suspect]
     Active Substance: SACUBITRIL\VALSARTAN
     Indication: CARDIAC FAILURE CONGESTIVE
     Dosage: 24/26, BID
     Route: 048
     Dates: start: 20200324, end: 202005

REACTIONS (18)
  - Blood creatinine increased [Unknown]
  - Mean cell haemoglobin increased [Unknown]
  - Red cell distribution width increased [Unknown]
  - Peripheral swelling [Recovering/Resolving]
  - Urine protein/creatinine ratio increased [Unknown]
  - Glomerular filtration rate decreased [Unknown]
  - Protein total decreased [Unknown]
  - Blood glucose increased [Unknown]
  - Blood potassium decreased [Unknown]
  - Blood alkaline phosphatase decreased [Unknown]
  - Blood uric acid increased [Unknown]
  - Mean cell volume increased [Unknown]
  - Carbon dioxide increased [Unknown]
  - Blood urea increased [Unknown]
  - Red blood cell count decreased [Unknown]
  - Swelling face [Recovering/Resolving]
  - Fluid retention [Recovering/Resolving]
  - Metamyelocyte count increased [Unknown]

NARRATIVE: CASE EVENT DATE: 202005
